FAERS Safety Report 10365410 (Version 1)
Quarter: 2014Q3

REPORT INFORMATION
  Report Type: Spontaneous
  Country: JP (occurrence: JP)
  Receive Date: 20140806
  Receipt Date: 20140806
  Transmission Date: 20150326
  Serious: Yes (Other)
  Sender: FDA-Public Use
  Company Number: PHHY2011JP120740

PATIENT
  Age: 76 Year
  Sex: Male

DRUGS (3)
  1. TASIGNA [Suspect]
     Active Substance: NILOTINIB
     Indication: CHRONIC MYELOID LEUKAEMIA
  2. GLIVEC [Suspect]
     Active Substance: IMATINIB MESYLATE
  3. SPRYCEL [Suspect]
     Active Substance: DASATINIB
     Dosage: 20 MG, PER DAY

REACTIONS (4)
  - White blood cell count decreased [Unknown]
  - Urticaria [Unknown]
  - Bone marrow disorder [Unknown]
  - Rash [Unknown]
